FAERS Safety Report 5597144-8 (Version None)
Quarter: 2008Q1

REPORT INFORMATION
  Report Type: 
  Country: None (occurrence: None)
  Receive Date: 20080121
  Receipt Date: 20080116
  Transmission Date: 20080703
  Serious: Yes (Death, Other)
  Sender: FDA-Public Use
  Company Number: PHBS2007NL21166

PATIENT
  Sex: Male

DRUGS (3)
  1. OXYCONTIN [Concomitant]
     Dosage: 5 MG/DAY
  2. IBUPROFEN [Concomitant]
     Dosage: 200 MG/DAY
  3. ZOMETA [Suspect]
     Indication: MULTIPLE MYELOMA
     Dosage: 4MG ONCE PER MONTH
     Route: 042
     Dates: start: 20040901

REACTIONS (3)
  - DEATH [None]
  - JAW OPERATION [None]
  - OSTEONECROSIS [None]
